FAERS Safety Report 7245540-5 (Version None)
Quarter: 2011Q1

REPORT INFORMATION
  Report Type: 
  Country: None (occurrence: None)
  Receive Date: 20110126
  Receipt Date: 20110113
  Transmission Date: 20110831
  Serious: Yes (Other)
  Sender: FDA-Public Use
  Company Number: DE-ROCHE-744931

PATIENT
  Sex: Female
  Weight: 55 kg

DRUGS (6)
  1. CALCIUM [Concomitant]
  2. QUENSYL [Concomitant]
     Route: 048
     Dates: start: 20081001
  3. ARAVA [Concomitant]
     Dates: start: 20090401
  4. PREDNISONE [Concomitant]
     Route: 048
     Dates: start: 20030101
  5. ROACTEMRA [Suspect]
     Route: 042
     Dates: start: 20100924, end: 20100924
  6. VITAMIN D [Concomitant]

REACTIONS (4)
  - SKIN BURNING SENSATION [None]
  - RASH PUSTULAR [None]
  - PRURITUS [None]
  - OEDEMA [None]
